FAERS Safety Report 8220456-6 (Version None)
Quarter: 2012Q1

REPORT INFORMATION
  Report Type: 
  Country: None (occurrence: None)
  Receive Date: 20120320
  Receipt Date: 20120312
  Transmission Date: 20120608
  Serious: Yes (Hospitalization, Disabling, Other)
  Sender: FDA-Public Use
  Company Number: BR-SANOFI-AVENTIS-2012SA016794

PATIENT
  Age: 95 Year
  Sex: Female
  Weight: 50 kg

DRUGS (1)
  1. LANTUS [Suspect]
     Route: 065
     Dates: start: 20070101

REACTIONS (5)
  - HYPERGLYCAEMIA [None]
  - URINARY TRACT INFECTION [None]
  - DYSPHAGIA [None]
  - MOBILITY DECREASED [None]
  - SPEECH DISORDER [None]
